FAERS Safety Report 9419345 (Version 1)
Quarter: 2013Q3

REPORT INFORMATION
  Report Type: Spontaneous
  Country: US (occurrence: US)
  Receive Date: 20130725
  Receipt Date: 20130725
  Transmission Date: 20140515
  Serious: Yes (Other)
  Sender: FDA-Public Use
  Company Number: US-GLAXOSMITHKLINE-A1017690A

PATIENT
  Age: 20 Year
  Sex: Male

DRUGS (2)
  1. LAMICTAL XR [Suspect]
     Indication: EPILEPSY
     Dosage: 100MG PER DAY
     Route: 048
     Dates: start: 20130206
  2. NO CONCURRENT MEDICATION [Concomitant]

REACTIONS (3)
  - Convulsion [Not Recovered/Not Resolved]
  - Drug level decreased [Not Recovered/Not Resolved]
  - Loss of consciousness [Unknown]
